FAERS Safety Report 8434382-0 (Version None)
Quarter: 2012Q2

REPORT INFORMATION
  Report Type: 
  Country: None (occurrence: None)
  Receive Date: 20120613
  Receipt Date: 20120605
  Transmission Date: 20120825
  Serious: Yes (Hospitalization)
  Sender: FDA-Public Use
  Company Number: AU-B.I. PHARMACEUTICALS,INC./RIDGEFIELD-2012-AU-01054AU

PATIENT
  Sex: Male

DRUGS (2)
  1. PRAMIPEXOLE DIHYDROCHLORIDE [Suspect]
  2. PRAMIPEXOLE DIHYDROCHLORIDE [Suspect]

REACTIONS (2)
  - PARKINSON'S DISEASE [None]
  - DRUG DISPENSING ERROR [None]
